FAERS Safety Report 17640596 (Version 2)
Quarter: 2020Q2

REPORT INFORMATION
  Report Type: Spontaneous
  Country: US (occurrence: US)
  Receive Date: 20200408
  Receipt Date: 20200415
  Transmission Date: 20200713
  Serious: Yes (Hospitalization, Other)
  Sender: FDA-Public Use
  Company Number: US-MACLEODS PHARMACEUTICALS US LTD-MAC2020026041

PATIENT

DRUGS (1)
  1. TRIAMCINOLONE ACETONIDE 0.1 % CREAM [Suspect]
     Active Substance: TRIAMCINOLONE ACETONIDE
     Indication: DERMATITIS DIAPER
     Dosage: 0.1 PERCENT, BID
     Route: 061

REACTIONS (4)
  - Inappropriate schedule of product administration [Recovered/Resolved]
  - Adrenal insufficiency [Recovered/Resolved]
  - Cushing^s syndrome [Recovered/Resolved]
  - Overdose [Recovered/Resolved]
